FAERS Safety Report 10596617 (Version 2)
Quarter: 2014Q4

REPORT INFORMATION
  Report Type: Report from Study
  Country: JP (occurrence: JP)
  Receive Date: 20141120
  Receipt Date: 20141120
  Transmission Date: 20150529
  Serious: Yes (Death, Disabling, Other)
  Sender: FDA-Public Use
  Company Number: PHHY2010JP88554

PATIENT
  Age: 74 Year
  Sex: Male

DRUGS (5)
  1. ICL670A [Suspect]
     Active Substance: DEFERASIROX
     Indication: IRON OVERLOAD
     Dosage: 1000 MG, QD
     Route: 065
     Dates: start: 20081001
  2. PREDONINE [Concomitant]
     Active Substance: PREDNISOLONE\PREDNISOLONE ACETATE\PREDNISOLONE SODIUM SUCCINATE
     Indication: MYELODYSPLASTIC SYNDROME
     Dosage: 5 MG, UNK
     Route: 048
     Dates: start: 20080624
  3. ICL670A [Suspect]
     Active Substance: DEFERASIROX
     Indication: MYELODYSPLASTIC SYNDROME
     Dosage: 1000 MG, UNK
     Route: 048
     Dates: start: 20081009, end: 20090528
  4. PARIET [Concomitant]
     Active Substance: RABEPRAZOLE SODIUM
     Indication: GASTROOESOPHAGEAL REFLUX DISEASE
     Dosage: 20 MG, UNK
     Route: 048
     Dates: start: 20080624
  5. MARZULENE S [Concomitant]
     Active Substance: GLUTAMINE\SODIUM GUALENATE
     Indication: GASTROOESOPHAGEAL REFLUX DISEASE
     Dosage: 1 G, UNK
     Route: 048
     Dates: start: 20080624

REACTIONS (6)
  - Malignant neoplasm progression [Fatal]
  - Neuropathy peripheral [Unknown]
  - Acute myeloid leukaemia [Fatal]
  - Myelodysplastic syndrome [Fatal]
  - Blood creatinine increased [Unknown]
  - Disease progression [Fatal]

NARRATIVE: CASE EVENT DATE: 20090602
